FAERS Safety Report 9628939 (Version 4)
Quarter: 2014Q1

REPORT INFORMATION
  Report Type: Report from Study
  Country: JP (occurrence: JP)
  Receive Date: 20131017
  Receipt Date: 20140326
  Transmission Date: 20141002
  Serious: Yes (Hospitalization)
  Sender: FDA-Public Use
  Company Number: JP-JNJFOC-20130614380

PATIENT
  Age: 71 Year
  Sex: Female
  Weight: 40 kg

DRUGS (18)
  1. SIMPONI [Suspect]
     Indication: RHEUMATOID ARTHRITIS
     Route: 058
     Dates: start: 20130205, end: 20130205
  2. METHOTREXATE [Concomitant]
     Indication: RHEUMATOID ARTHRITIS
     Route: 048
  3. METHOTREXATE [Concomitant]
     Indication: RHEUMATOID ARTHRITIS
     Route: 048
  4. METHOTREXATE [Concomitant]
     Indication: RHEUMATOID ARTHRITIS
     Route: 048
  5. SALAZOSULFAPYRIDINE [Concomitant]
     Indication: RHEUMATOID ARTHRITIS
     Route: 048
  6. SALAZOSULFAPYRIDINE [Concomitant]
     Indication: RHEUMATOID ARTHRITIS
     Route: 048
  7. PARIET [Concomitant]
     Indication: PROPHYLAXIS
     Route: 048
  8. EDIROL [Concomitant]
     Indication: PROPHYLAXIS
     Route: 048
  9. BAKTAR [Concomitant]
     Indication: PROPHYLAXIS
     Route: 048
  10. FOLIAMIN [Concomitant]
     Indication: PROPHYLAXIS
     Route: 048
  11. BONALON [Concomitant]
     Indication: OSTEOPOROSIS
     Route: 048
  12. MAGNESIUM OXIDE [Concomitant]
     Indication: CONSTIPATION
     Route: 048
  13. MUCOSTA [Concomitant]
     Indication: PROPHYLAXIS
     Route: 048
  14. PREDONINE [Concomitant]
     Indication: RHEUMATOID ARTHRITIS
     Route: 048
  15. PREDONINE [Concomitant]
     Indication: RHEUMATOID ARTHRITIS
     Route: 048
  16. PREDONINE [Concomitant]
     Indication: RHEUMATOID ARTHRITIS
     Route: 048
  17. CALONAL [Concomitant]
     Indication: PYREXIA
     Route: 065
     Dates: start: 20130213
  18. NON-PYRINE COLD PREPARATION [Concomitant]
     Route: 048

REACTIONS (1)
  - Renal cyst infection [Recovered/Resolved]
